FAERS Safety Report 16449282 (Version 1)
Quarter: 2019Q2

REPORT INFORMATION
  Report Type: Spontaneous
  Country: US (occurrence: US)
  Receive Date: 20190508
  Receipt Date: 20190508
  Transmission Date: 20190711
  Serious: No
  Sender: FDA-Public Use
  Company Number: None

PATIENT
  Sex: Male
  Weight: 99.79 kg

DRUGS (8)
  1. GLIPIZIDE. [Concomitant]
     Active Substance: GLIPIZIDE
  2. RANITIDINE. [Concomitant]
     Active Substance: RANITIDINE
  3. BALSALAZIDE DISODIUM. [Concomitant]
     Active Substance: BALSALAZIDE DISODIUM
  4. GABAPENTIN. [Concomitant]
     Active Substance: GABAPENTIN
  5. LOSARTAN POTASSIUM. [Suspect]
     Active Substance: LOSARTAN POTASSIUM
     Indication: HYPERTENSION
     Dosage: ?          QUANTITY:1 DF DOSAGE FORM;?
     Route: 048
     Dates: start: 2007, end: 20190301
  6. OLMESARTAN MEDOXOMILL [Concomitant]
  7. ATORVASTAIN [Concomitant]
     Active Substance: ATORVASTATIN
  8. ALEVE [Concomitant]
     Active Substance: NAPROXEN SODIUM

REACTIONS (3)
  - Product quality issue [None]
  - Leukaemia [None]
  - Recalled product administered [None]
